FAERS Safety Report 4305205-6 (Version None)
Quarter: 2004Q1

REPORT INFORMATION
  Report Type: 
  Country: None (occurrence: None)
  Receive Date: 20040226
  Receipt Date: 20040217
  Transmission Date: 20041129
  Serious: Yes (Hospitalization)
  Sender: FDA-Public Use
  Company Number: WAES 0402USA01370

PATIENT
  Age: 67 Year
  Sex: Male

DRUGS (9)
  1. FOSAMAX [Suspect]
     Route: 048
  2. FOSAMAX [Suspect]
     Route: 048
  3. LANOXIN [Concomitant]
     Indication: ATRIAL FIBRILLATION
  4. PREVACID [Concomitant]
  5. IMODIUM [Concomitant]
  6. PREDNISONE [Concomitant]
     Indication: CROHN'S DISEASE
  7. PROGESTERONE [Concomitant]
  8. TESTOSTERONE [Concomitant]
     Indication: SEXUAL DYSFUNCTION
  9. COUMADIN [Concomitant]

REACTIONS (9)
  - ASEPTIC NECROSIS BONE [None]
  - BODY HEIGHT DECREASED [None]
  - FALL [None]
  - FEMORAL NECK FRACTURE [None]
  - FOOT FRACTURE [None]
  - INTERVERTEBRAL DISC DEGENERATION [None]
  - MULTIPLE FRACTURES [None]
  - RIB FRACTURE [None]
  - SPINAL COMPRESSION FRACTURE [None]
